FAERS Safety Report 5578643-1 (Version None)
Quarter: 2007Q4

REPORT INFORMATION
  Report Type: 
  Country: None (occurrence: None)
  Receive Date: 20071227
  Receipt Date: 20071227
  Transmission Date: 20080405
  Serious: Yes (Hospitalization)
  Sender: FDA-Public Use
  Company Number: None

PATIENT
  Sex: Female
  Weight: 100.2449 kg

DRUGS (1)
  1. SORAFENIB 200MG BAYER [Suspect]
     Indication: MESOTHELIOMA
     Dosage: 200MG QD PO
     Route: 048
     Dates: start: 20071128, end: 20071212

REACTIONS (4)
  - CEREBRAL HAEMORRHAGE [None]
  - CONVULSION [None]
  - FALL [None]
  - HEAD INJURY [None]
